FAERS Safety Report 11561545 (Version 2)
Quarter: 2016Q4

REPORT INFORMATION
  Report Type: Spontaneous
  Country: IE (occurrence: IE)
  Receive Date: 20150928
  Receipt Date: 20161004
  Transmission Date: 20170206
  Serious: Yes (Other)
  Sender: FDA-Public Use
  Company Number: IE-PFIZER INC-2015307903

PATIENT
  Sex: Male

DRUGS (1)
  1. INLYTA [Suspect]
     Active Substance: AXITINIB
     Indication: METASTATIC RENAL CELL CARCINOMA
     Dosage: 5 MG, TWICE A DAY
     Dates: start: 20150803

REACTIONS (5)
  - Ascites [Unknown]
  - Dyspnoea [Unknown]
  - Oedema [Unknown]
  - Disease progression [Unknown]
  - Metastatic renal cell carcinoma [Unknown]
